FAERS Safety Report 5713877-4 (Version None)
Quarter: 2008Q2

REPORT INFORMATION
  Report Type: 
  Country: None (occurrence: None)
  Receive Date: 20080421
  Receipt Date: 20080408
  Transmission Date: 20081010
  Serious: Yes (Hospitalization)
  Sender: FDA-Public Use
  Company Number: A-CH2008-20169

PATIENT
  Age: 54 Year
  Sex: Female

DRUGS (1)
  1. TRACLEER [Suspect]
     Indication: SYSTEMIC SCLEROSIS PULMONARY
     Dosage: 62.5 MG, BID, ORAL
     Route: 048

REACTIONS (4)
  - CARDIAC FAILURE [None]
  - CONDITION AGGRAVATED [None]
  - OFF LABEL USE [None]
  - PLEURAL EFFUSION [None]
